FAERS Safety Report 11660392 (Version 1)
Quarter: 2015Q4

REPORT INFORMATION
  Report Type: Spontaneous
  Country: US (occurrence: None)
  Receive Date: 20151023
  Receipt Date: 20151023
  Transmission Date: 20160304
  Serious: Yes (Hospitalization)
  Sender: FDA-Public Use
  Company Number: None

PATIENT
  Age: 77 Year
  Sex: Male
  Weight: 81.4 kg

DRUGS (6)
  1. PIPERACILLIN/TAZOBACTAM [Suspect]
     Active Substance: PIPERACILLIN SODIUM\TAZOBACTAM SODIUM
     Indication: CARDIOVASCULAR DISORDER
     Dosage: 4.5 GM OTHER IV
     Route: 042
     Dates: start: 20150917, end: 20150924
  2. PIPERACILLIN/TAZOBACTAM [Suspect]
     Active Substance: PIPERACILLIN SODIUM\TAZOBACTAM SODIUM
     Indication: VASCULAR OPERATION
     Dosage: 4.5 GM OTHER IV
     Route: 042
     Dates: start: 20150917, end: 20150924
  3. PIPERACILLIN/TAZOBACTAM [Suspect]
     Active Substance: PIPERACILLIN SODIUM\TAZOBACTAM SODIUM
     Indication: LUNG DISORDER
     Dosage: 4.5 GM OTHER IV
     Route: 042
     Dates: start: 20150917, end: 20150924
  4. PIPERACILLIN/TAZOBACTAM [Suspect]
     Active Substance: PIPERACILLIN SODIUM\TAZOBACTAM SODIUM
     Indication: UPPER RESPIRATORY TRACT INFECTION
     Dosage: 4.5 GM OTHER IV
     Route: 042
     Dates: start: 20150917, end: 20150924
  5. NAFCILLIN [Concomitant]
     Active Substance: NAFCILLIN\NAFCILLIN SODIUM
     Dosage: 12 GM OTHER IV
     Route: 042
     Dates: start: 20150924, end: 20150929
  6. PIPERACILLIN/TAZOBACTAM [Suspect]
     Active Substance: PIPERACILLIN SODIUM\TAZOBACTAM SODIUM
     Indication: STAPHYLOCOCCAL INFECTION
     Dosage: 4.5 GM OTHER IV
     Route: 042
     Dates: start: 20150917, end: 20150924

REACTIONS (4)
  - Blood creatinine increased [None]
  - Hyperkalaemia [None]
  - Nephritis [None]
  - Blood urea increased [None]

NARRATIVE: CASE EVENT DATE: 20150929
